FAERS Safety Report 6234730-6 (Version None)
Quarter: 2009Q2

REPORT INFORMATION
  Report Type: 
  Country: None (occurrence: None)
  Receive Date: 20090615
  Receipt Date: 20090604
  Transmission Date: 20091009
  Serious: Yes (Death, Life-Threatening, Hospitalization)
  Sender: FDA-Public Use
  Company Number: POMP-1000468

PATIENT
  Age: 8 Month
  Sex: Male
  Weight: 8.6 kg

DRUGS (3)
  1. MYOZYME [Suspect]
     Indication: GLYCOGEN STORAGE DISEASE TYPE II
     Dosage: 100 MG, Q2W, INTRAVENOUS
     Route: 042
     Dates: start: 20080923, end: 20090120
  2. RITUXIMAB (RITUXIMAB) [Concomitant]
  3. METHOTREXATE [Concomitant]

REACTIONS (8)
  - BODY TEMPERATURE INCREASED [None]
  - HYPERTENSION [None]
  - INFUSION RELATED REACTION [None]
  - NERVOUS SYSTEM DISORDER [None]
  - RESPIRATORY FAILURE [None]
  - SEPSIS [None]
  - UNRESPONSIVE TO STIMULI [None]
  - VISION BLURRED [None]
